FAERS Safety Report 4712684-9 (Version None)
Quarter: 2005Q3

REPORT INFORMATION
  Report Type: 
  Country: None (occurrence: None)
  Receive Date: 20050708
  Receipt Date: 20050301
  Transmission Date: 20060218
  Serious: Yes (Hospitalization)
  Sender: FDA-Public Use
  Company Number: US-2005-002899

PATIENT
  Sex: Female

DRUGS (2)
  1. ULTRAVIST 300 [Suspect]
     Indication: COMPUTERISED TOMOGRAM THORAX
     Dosage: 100 ML, 1 DOSE, INTRAVENOUS
     Route: 042
     Dates: start: 20050228, end: 20050228
  2. COUMADIN [Concomitant]

REACTIONS (6)
  - ANAPHYLACTOID REACTION [None]
  - DYSPNOEA [None]
  - LACRIMATION INCREASED [None]
  - NASAL CONGESTION [None]
  - SNEEZING [None]
  - SWOLLEN TONGUE [None]
